FAERS Safety Report 12370112 (Version 1)
Quarter: 2016Q2

REPORT INFORMATION
  Report Type: Spontaneous
  Country: None (occurrence: None)
  Receive Date: 20160513
  Receipt Date: 20160513
  Transmission Date: 20160815
  Serious: Yes (Other)
  Sender: FDA-Public Use
  Company Number: None

PATIENT
  Age: 26 Year
  Sex: Female

DRUGS (1)
  1. NATALIZUMAB [Suspect]
     Active Substance: NATALIZUMAB

REACTIONS (8)
  - Nausea [None]
  - Metastases to meninges [None]
  - Demyelination [None]
  - Neck pain [None]
  - Pyrexia [None]
  - Headache [None]
  - Photophobia [None]
  - Vomiting [None]

NARRATIVE: CASE EVENT DATE: 20150613
